FAERS Safety Report 20021278 (Version 3)
Quarter: 2022Q2

REPORT INFORMATION
  Report Type: Spontaneous
  Country: ES (occurrence: ES)
  Receive Date: 20211101
  Receipt Date: 20220531
  Transmission Date: 20220720
  Serious: Yes (Other)
  Sender: FDA-Public Use
  Company Number: ES-LUNDBECK-DKLU3040169

PATIENT
  Sex: Female

DRUGS (6)
  1. BRINTELLIX [Suspect]
     Active Substance: VORTIOXETINE HYDROBROMIDE
     Indication: Product used for unknown indication
     Dosage: 20 MILLIGRAM, QD
     Route: 065
     Dates: start: 2018
  2. TIANEPTINE [Concomitant]
     Active Substance: TIANEPTINE
     Indication: Product used for unknown indication
     Dosage: UNK
     Route: 065
  3. LORAZEPAM [Concomitant]
     Active Substance: LORAZEPAM
     Indication: Product used for unknown indication
     Dosage: UNK
     Route: 065
  4. KETAZOLAM [Concomitant]
     Active Substance: KETAZOLAM
     Indication: Product used for unknown indication
     Dosage: UNK
     Route: 065
  5. TIANEPTINE SODIUM [Concomitant]
     Active Substance: TIANEPTINE SODIUM
     Indication: Product used for unknown indication
     Dosage: UNK
     Route: 065
  6. LAMOTRIGINE [Concomitant]
     Active Substance: LAMOTRIGINE
     Indication: Product used for unknown indication
     Dosage: UNK
     Route: 065

REACTIONS (4)
  - Suicidal ideation [Unknown]
  - Feeling abnormal [Unknown]
  - Memory impairment [Unknown]
  - Adverse drug reaction [Unknown]
